FAERS Safety Report 8127066-X (Version None)
Quarter: 2012Q1

REPORT INFORMATION
  Report Type: 
  Country: None (occurrence: None)
  Receive Date: 20120210
  Receipt Date: 20120202
  Transmission Date: 20120608
  Serious: Yes (Hospitalization, Other)
  Sender: FDA-Public Use
  Company Number: US-BAYER-2011-075684

PATIENT
  Age: 21 Year
  Sex: Female
  Weight: 73.016 kg

DRUGS (6)
  1. METOCLOPRAMIDE [Concomitant]
  2. FAMOTIDINE [Concomitant]
  3. BISACODYL [Concomitant]
  4. NUVARING [Concomitant]
  5. YAZ [Suspect]
     Dosage: UNK
     Dates: start: 20081101, end: 20090601
  6. SUCRALFATE [Concomitant]

REACTIONS (4)
  - BILIARY DYSKINESIA [None]
  - INJURY [None]
  - GALLBLADDER INJURY [None]
  - PAIN [None]
